FAERS Safety Report 17604024 (Version 1)
Quarter: 2020Q1

REPORT INFORMATION
  Report Type: Spontaneous
  Country: IT (occurrence: IT)
  Receive Date: 20200331
  Receipt Date: 20200331
  Transmission Date: 20200409
  Serious: Yes (Hospitalization)
  Sender: FDA-Public Use
  Company Number: IT-TEVA-2020-IT-1212914

PATIENT
  Age: 84 Year
  Sex: Male

DRUGS (15)
  1. CARDURA [Concomitant]
     Active Substance: DOXAZOSIN MESYLATE
  2. SERTRALINE [Concomitant]
     Active Substance: SERTRALINE HYDROCHLORIDE
  3. ALENDRONATE SODIUM. [Concomitant]
     Active Substance: ALENDRONATE SODIUM
  4. TAREG [Concomitant]
     Active Substance: VALSARTAN
  5. DOBETIN [Concomitant]
  6. ZAROXOLYN [Concomitant]
     Active Substance: METOLAZONE
  7. CORDARONE [Suspect]
     Active Substance: AMIODARONE HYDROCHLORIDE
     Indication: PRODUCT USED FOR UNKNOWN INDICATION
     Dosage: 1 DOSAGE FORMS
     Route: 048
     Dates: start: 20190101, end: 20191231
  8. COUMADIN [Concomitant]
     Active Substance: WARFARIN SODIUM
  9. BISOPROLOL FUMARATE. [Suspect]
     Active Substance: BISOPROLOL FUMARATE
     Indication: PRODUCT USED FOR UNKNOWN INDICATION
     Dosage: 1 DOSAGE FORMS
     Route: 048
     Dates: start: 20190101, end: 20191231
  10. RANEXA [Concomitant]
     Active Substance: RANOLAZINE
  11. LASIX [Concomitant]
     Active Substance: FUROSEMIDE
  12. ACETYLSALICYLIC ACID [Concomitant]
     Active Substance: ASPIRIN
  13. CETIRIZINE [Concomitant]
     Active Substance: CETIRIZINE HYDROCHLORIDE
  14. ZYLORIC [Concomitant]
     Active Substance: ALLOPURINOL
  15. ACARPHAGE [Concomitant]
     Active Substance: ACARBOSE

REACTIONS (1)
  - Electrocardiogram QT prolonged [Unknown]

NARRATIVE: CASE EVENT DATE: 20191231
